FAERS Safety Report 8385944-0 (Version None)
Quarter: 2012Q2

REPORT INFORMATION
  Report Type: 
  Country: None (occurrence: None)
  Receive Date: 20120525
  Receipt Date: 20120514
  Transmission Date: 20120825
  Serious: Yes (Other)
  Sender: FDA-Public Use
  Company Number: CA-JNJFOC-20120512236

PATIENT
  Sex: Male
  Weight: 67 kg

DRUGS (2)
  1. REMICADE [Suspect]
     Route: 042
     Dates: start: 20120514
  2. REMICADE [Suspect]
     Indication: CROHN'S DISEASE
     Route: 042
     Dates: start: 20091101

REACTIONS (4)
  - PYREXIA [None]
  - ABDOMINAL PAIN [None]
  - HAEMATOCHEZIA [None]
  - FLATULENCE [None]
